FAERS Safety Report 8907109 (Version 1)
Quarter: 2012Q4

REPORT INFORMATION
  Report Type: 
  Country: US (occurrence: US)
  Receive Date: 20121113
  Receipt Date: 20121113
  Transmission Date: 20130627
  Serious: No
  Sender: FDA-Public Use
  Company Number: US-AMGEN-USASP2012010935

PATIENT
  Age: 53 Year
  Sex: Female

DRUGS (14)
  1. ENBREL [Suspect]
     Indication: PRODUCT USED FOR UNKNOWN INDICATION
     Dosage: 50 mg, qwk
     Route: 058
  2. SINGULAIR [Concomitant]
     Dosage: 10 mg, UNK
  3. ALLEGRA [Concomitant]
     Dosage: 30 mg, UNK
  4. ATENOLOL [Concomitant]
     Dosage: 25 mg, UNK
  5. ATACAND [Concomitant]
     Dosage: 32 mg, UNK
  6. PULMICORT [Concomitant]
     Dosage: UNK
  7. NEXIUM                             /01479302/ [Concomitant]
     Dosage: 20 mg, UNK
  8. HYDROCHLOROTH [Concomitant]
     Dosage: 12.5 mg, UNK
  9. VITAMIN C                          /00008001/ [Concomitant]
     Dosage: 500 mg, UNK
  10. B COMPLEX                          /00212701/ [Concomitant]
     Dosage: UNK
  11. MULTIVITAMIN                       /00097801/ [Concomitant]
     Dosage: UNK
  12. NORCO [Concomitant]
     Dosage: 5 mg, UNK
  13. VITAMIN A /00056001/ [Concomitant]
     Dosage: UNK
  14. B12                                /00056201/ [Concomitant]
     Dosage: 1 mg, UNK

REACTIONS (3)
  - Nasopharyngitis [Recovered/Resolved]
  - Diarrhoea [Recovered/Resolved]
  - Rash [Recovered/Resolved]
